FAERS Safety Report 4601763-2 (Version None)
Quarter: 2005Q1

REPORT INFORMATION
  Report Type: 
  Country: None (occurrence: None)
  Receive Date: 20050131
  Receipt Date: 20041210
  Transmission Date: 20050727
  Serious: No
  Sender: FDA-Public Use
  Company Number: 200419504US

PATIENT
  Age: 41 Year
  Sex: Female

DRUGS (3)
  1. KETEK [Suspect]
     Indication: SINUSITIS
     Dosage: 800 MG QD
     Dates: start: 20041209
  2. PHENYLEPHRINE HYDROCHLORIDE [Concomitant]
  3. GUAIFENESIN (ENTEX LA) [Concomitant]

REACTIONS (3)
  - DIARRHOEA [None]
  - HEADACHE [None]
  - STOMACH DISCOMFORT [None]
